FAERS Safety Report 19816953 (Version 1)
Quarter: 2021Q3

REPORT INFORMATION
  Report Type: Report from Study
  Country: CO (occurrence: CO)
  Receive Date: 20210910
  Receipt Date: 20210910
  Transmission Date: 20211014
  Serious: Yes (Hospitalization)
  Sender: FDA-Public Use
  Company Number: CO-BAYER-2021-207311

PATIENT
  Age: 64 Year
  Sex: Female

DRUGS (2)
  1. VENTAVIS [Suspect]
     Active Substance: ILOPROST
     Indication: PULMONARY HYPERTENSION
     Dosage: 6 DF (NEBULISATIONS)
     Route: 055
     Dates: start: 20180920
  2. ADEMPAS [Suspect]
     Active Substance: RIOCIGUAT
     Dosage: 1.5 MG TO 2.5 MG
     Dates: start: 20161101, end: 20210905

REACTIONS (3)
  - Renal disorder [Not Recovered/Not Resolved]
  - Cardiac disorder [Not Recovered/Not Resolved]
  - Inflammation [None]

NARRATIVE: CASE EVENT DATE: 20210827
